FAERS Safety Report 7304368-8 (Version None)
Quarter: 2011Q1

REPORT INFORMATION
  Report Type: 
  Country: None (occurrence: None)
  Receive Date: 20110221
  Receipt Date: 20110209
  Transmission Date: 20110831
  Serious: Yes (Hospitalization, Other)
  Sender: FDA-Public Use
  Company Number: US-ELI_LILLY_AND_COMPANY-US200911004437

PATIENT
  Sex: Female

DRUGS (13)
  1. FORTEO [Suspect]
     Dosage: 20 UG, DAILY (1/D)
  2. OMEPRAZOLE [Concomitant]
  3. MUCINEX [Concomitant]
  4. CALCIUM W/VITAMIN D NOS [Concomitant]
  5. IMMUNE GLOBULIN NOS [Concomitant]
     Dosage: UNK, OTHER
     Route: 042
  6. THEOPHYLLINE [Concomitant]
  7. PULMICORT [Concomitant]
  8. FORTEO [Suspect]
     Dosage: 20 UG, DAILY (1/D)
  9. FORTEO [Suspect]
     Indication: OSTEOPOROSIS
     Dosage: 20 UG, DAILY (1/D)
     Dates: start: 20091111
  10. ALBUTEROL SULFATE [Concomitant]
  11. PHENYTOIN SODIUM [Concomitant]
  12. PREDNISONE [Concomitant]
  13. PHENOBARBITAL TAB [Concomitant]

REACTIONS (14)
  - MOTOR DYSFUNCTION [None]
  - RECTAL HAEMORRHAGE [None]
  - THROMBOSIS [None]
  - PNEUMONIA [None]
  - NASOPHARYNGITIS [None]
  - MALAISE [None]
  - BRONCHITIS CHRONIC [None]
  - MEMORY IMPAIRMENT [None]
  - TREMOR [None]
  - ABDOMINAL DISTENSION [None]
  - NAUSEA [None]
  - EYE INFECTION [None]
  - BALANCE DISORDER [None]
  - PANCREATITIS [None]
